FAERS Safety Report 13392876 (Version 1)
Quarter: 2017Q1

REPORT INFORMATION
  Report Type: Spontaneous
  Country: JP (occurrence: JP)
  Receive Date: 20170331
  Receipt Date: 20170331
  Transmission Date: 20170429
  Serious: Yes (Death, Other)
  Sender: FDA-Public Use
  Company Number: PHHY2017JP044293

PATIENT
  Age: 66 Year
  Sex: Female

DRUGS (5)
  1. SODIUM [Concomitant]
     Active Substance: SODIUM
     Indication: PRODUCT USED FOR UNKNOWN INDICATION
     Route: 048
  2. PACLITAXEL. [Suspect]
     Active Substance: PACLITAXEL
     Indication: URETHRAL CANCER
     Dosage: 175 MG/M2, DAY 1
     Route: 042
  3. IFOSFAMIDE. [Suspect]
     Active Substance: IFOSFAMIDE
     Indication: URETHRAL CANCER
     Dosage: 1200 MG/M2, DAY 1-3
     Route: 042
  4. CISPLATIN. [Suspect]
     Active Substance: CISPLATIN
     Indication: URETHRAL CANCER
     Dosage: 25 MG/M2, DAY 1-3
     Route: 042
  5. CARBOPLATIN. [Suspect]
     Active Substance: CARBOPLATIN
     Indication: URETHRAL CANCER
     Route: 065

REACTIONS (5)
  - Drug effect incomplete [Unknown]
  - Urethral cancer [Fatal]
  - Disease progression [Fatal]
  - Anorexia nervosa [Recovering/Resolving]
  - Inappropriate antidiuretic hormone secretion [Unknown]
